FAERS Safety Report 5341953-7 (Version None)
Quarter: 2007Q2

REPORT INFORMATION
  Report Type: 
  Country: None (occurrence: None)
  Receive Date: 20070601
  Receipt Date: 20070522
  Transmission Date: 20071010
  Serious: Yes (Hospitalization)
  Sender: FDA-Public Use
  Company Number: HQWYE064110APR07

PATIENT
  Sex: Female
  Weight: 46 kg

DRUGS (3)
  1. ANGE-28 [Suspect]
     Indication: CONTRACEPTION
     Route: 048
     Dates: start: 20070301, end: 20070301
  2. DEPAS [Concomitant]
     Dosage: UNKNOWN
     Route: 048
     Dates: start: 20050101
  3. PAXIL [Concomitant]
     Dosage: UNKNOWN
     Route: 048
     Dates: start: 20050101

REACTIONS (2)
  - ANOREXIA [None]
  - LIVER FUNCTION TEST ABNORMAL [None]
